FAERS Safety Report 6030280-0 (Version None)
Quarter: 2009Q1

REPORT INFORMATION
  Report Type: 
  Country: None (occurrence: None)
  Receive Date: 20090107
  Receipt Date: 20081230
  Transmission Date: 20090719
  Serious: Yes (Other)
  Sender: FDA-Public Use
  Company Number: AU-EISAI MEDIAL RESEARCH-E3810-02278-SPO-AU

PATIENT
  Age: 67 Year
  Sex: Female

DRUGS (2)
  1. RABEPRAZOLE SODIUM [Suspect]
     Route: 048
     Dates: start: 20070816, end: 20081010
  2. ACTONEL [Concomitant]

REACTIONS (1)
  - BILE DUCT CANCER [None]
